FAERS Safety Report 5843816-7 (Version None)
Quarter: 2008Q3

REPORT INFORMATION
  Report Type: 
  Country: None (occurrence: None)
  Receive Date: 20080813
  Receipt Date: 20080731
  Transmission Date: 20090109
  Serious: Yes (Disabling)
  Sender: FDA-Public Use
  Company Number: PHHY2008IT16318

PATIENT
  Sex: Male

DRUGS (8)
  1. ZOMETA [Suspect]
     Indication: METASTASES TO BONE
     Dosage: 4 MG EVERY ONE MONTH
     Route: 042
     Dates: start: 20060901, end: 20080711
  2. CACIT VITAMINE D3 [Concomitant]
  3. MICARDIS HCT [Concomitant]
  4. DECAPEPTYL DEPOT [Concomitant]
  5. LASIX [Concomitant]
  6. TACHIDOL [Concomitant]
  7. COUMADIN [Concomitant]
  8. CARDURA [Concomitant]

REACTIONS (2)
  - OSTEONECROSIS [None]
  - TOOTH AVULSION [None]
